APPROVED DRUG PRODUCT: OXYCODONE HYDROCHLORIDE
Active Ingredient: OXYCODONE HYDROCHLORIDE
Strength: 100MG/5ML
Dosage Form/Route: SOLUTION;ORAL
Application: A208795 | Product #001
Applicant: HIKMA PHARMACEUTICALS USA INC
Approved: Aug 7, 2017 | RLD: No | RS: No | Type: DISCN